FAERS Safety Report 4841347-4 (Version None)
Quarter: 2005Q4

REPORT INFORMATION
  Report Type: 
  Country: None (occurrence: None)
  Receive Date: 20051130
  Receipt Date: 20051129
  Transmission Date: 20060501
  Serious: Yes (Hospitalization)
  Sender: FDA-Public Use
  Company Number: DE-GLAXOSMITHKLINE-D0048136A

PATIENT
  Sex: Male

DRUGS (1)
  1. VIANI [Suspect]
     Route: 055

REACTIONS (1)
  - CONVULSION [None]
